FAERS Safety Report 9617558 (Version 1)
Quarter: 2013Q4

REPORT INFORMATION
  Report Type: Spontaneous
  Country: US (occurrence: None)
  Receive Date: 20131009
  Receipt Date: 20131009
  Transmission Date: 20140711
  Serious: Yes (Other)
  Sender: FDA-Public Use
  Company Number: AMAG201300164

PATIENT
  Sex: Male

DRUGS (2)
  1. FERAHEME (FERUMOXYTOL) INJECTION, 510MG [Suspect]
     Indication: ANAEMIA
     Route: 042
     Dates: start: 20130926, end: 20130926
  2. CHEMOTHERAPEUTIC DRUGS [Concomitant]

REACTIONS (5)
  - Convulsion [None]
  - Temporomandibular joint syndrome [None]
  - Gaze palsy [None]
  - Unresponsive to stimuli [None]
  - Dyspnoea [None]
